FAERS Safety Report 14213157 (Version 1)
Quarter: 2017Q4

REPORT INFORMATION
  Report Type: Spontaneous
  Country: US (occurrence: US)
  Receive Date: 20171122
  Receipt Date: 20171122
  Transmission Date: 20180321
  Serious: Yes (Hospitalization, Other)
  Sender: FDA-Public Use
  Company Number: US-BAYER-2017-217991

PATIENT
  Age: 25 Year
  Sex: Female

DRUGS (1)
  1. MIRENA [Suspect]
     Active Substance: LEVONORGESTREL
     Indication: CONTRACEPTION
     Dosage: 20 MCG/24HR, CONT
     Route: 015
     Dates: start: 2015, end: 20171018

REACTIONS (5)
  - Infection [None]
  - Loss of consciousness [None]
  - Seizure [None]
  - Loss of personal independence in daily activities [None]
  - Complication of device removal [None]

NARRATIVE: CASE EVENT DATE: 20171019
